FAERS Safety Report 6228617-2 (Version None)
Quarter: 2009Q2

REPORT INFORMATION
  Report Type: 
  Country: None (occurrence: None)
  Receive Date: 20090612
  Receipt Date: 20090602
  Transmission Date: 20091009
  Serious: Yes (Hospitalization)
  Sender: FDA-Public Use
  Company Number: SK-MERCK-0906CZE00001

PATIENT
  Age: 35 Year
  Sex: Male
  Weight: 82 kg

DRUGS (4)
  1. HYDROCORTISONE 10MG TAB [Suspect]
     Indication: HYPOPITUITARISM
     Route: 048
     Dates: start: 19790101, end: 20090123
  2. SOMATROPIN [Concomitant]
     Indication: BLOOD GROWTH HORMONE ABNORMAL
     Route: 051
     Dates: start: 20050825
  3. LEVOTHYROXINE SODIUM [Concomitant]
     Indication: HYPOPITUITARISM
     Route: 065
     Dates: start: 19790101, end: 20090123
  4. TESTOSTERONE UNDECANOATE [Concomitant]
     Indication: HYPOPITUITARISM
     Route: 065
     Dates: start: 20080304, end: 20090123

REACTIONS (1)
  - ADRENOCORTICAL INSUFFICIENCY ACUTE [None]
